FAERS Safety Report 16533105 (Version 1)
Quarter: 2019Q3

REPORT INFORMATION
  Report Type: Spontaneous
  Country: CN (occurrence: CN)
  Receive Date: 20190704
  Receipt Date: 20190704
  Transmission Date: 20191004
  Serious: Yes (Other)
  Sender: FDA-Public Use
  Company Number: CN-PFIZER INC-2019282064

PATIENT
  Age: 81 Year
  Sex: Male

DRUGS (1)
  1. TAZOCIN [Suspect]
     Active Substance: PIPERACILLIN SODIUM\TAZOBACTAM SODIUM
     Indication: ANTI-INFECTIVE THERAPY
     Dosage: 4.5 G, Q12H
     Route: 041

REACTIONS (4)
  - Shock [Unknown]
  - Hypotension [Unknown]
  - Pyrexia [Unknown]
  - Haematochezia [Unknown]

NARRATIVE: CASE EVENT DATE: 20190214
